FAERS Safety Report 7423972-X (Version None)
Quarter: 2011Q2

REPORT INFORMATION
  Report Type: 
  Country: None (occurrence: None)
  Receive Date: 20110419
  Receipt Date: 20110411
  Transmission Date: 20111010
  Serious: Yes (Other)
  Sender: FDA-Public Use
  Company Number: B0711899B

PATIENT
  Sex: Female
  Weight: 71 kg

DRUGS (3)
  1. NOCERTONE [Suspect]
     Indication: EPILEPSY
     Dosage: 60MG TWICE PER DAY
     Route: 048
  2. NEURONTIN [Suspect]
     Indication: EPILEPSY
     Dosage: 800MG TWICE PER DAY
     Route: 048
  3. LAMICTAL [Suspect]
     Indication: EPILEPSY
     Route: 048

REACTIONS (3)
  - DRUG EXPOSURE DURING PREGNANCY [None]
  - PREMATURE LABOUR [None]
  - PRE-ECLAMPSIA [None]
